FAERS Safety Report 21667203 (Version 2)
Quarter: 2023Q1

REPORT INFORMATION
  Report Type: Report from Study
  Country: GB (occurrence: GB)
  Receive Date: 20221201
  Receipt Date: 20230126
  Transmission Date: 20230417
  Serious: Yes (Death, Hospitalization, Other)
  Sender: FDA-Public Use
  Company Number: GB-TAKEDA-2022TUS090983

PATIENT
  Sex: Male

DRUGS (1)
  1. VEDOLIZUMAB [Suspect]
     Active Substance: VEDOLIZUMAB
     Indication: Colitis ulcerative
     Dosage: 108 MILLIGRAM
     Route: 058
     Dates: start: 202208, end: 202301

REACTIONS (2)
  - Death [Fatal]
  - Sepsis [Unknown]
